FAERS Safety Report 9640784 (Version 1)
Quarter: 2013Q4

REPORT INFORMATION
  Report Type: Spontaneous
  Country: US (occurrence: None)
  Receive Date: 20131022
  Receipt Date: 20131022
  Transmission Date: 20140711
  Serious: Yes (Disabling, Other)
  Sender: FDA-Public Use
  Company Number: None

PATIENT
  Age: 72 Year
  Sex: Female
  Weight: 63.5 kg

DRUGS (1)
  1. IBANDRONATE SODIUM [Suspect]
     Indication: OSTEOPENIA
     Dosage: 1 TAKEN BY MOUTH
     Route: 048
     Dates: start: 20120807, end: 20130607

REACTIONS (18)
  - Arthralgia [None]
  - Back pain [None]
  - Ocular hyperaemia [None]
  - Eye pain [None]
  - Vision blurred [None]
  - Headache [None]
  - Muscle spasms [None]
  - Insomnia [None]
  - Condition aggravated [None]
  - Osteoarthritis [None]
  - Neuropathy peripheral [None]
  - Depression [None]
  - Dental caries [None]
  - Nausea [None]
  - Pruritus [None]
  - Urticaria [None]
  - Loose tooth [None]
  - Tooth fracture [None]
